FAERS Safety Report 24769529 (Version 2)
Quarter: 2025Q1

REPORT INFORMATION
  Report Type: Spontaneous
  Country: US (occurrence: US)
  Receive Date: 20241224
  Receipt Date: 20250103
  Transmission Date: 20250409
  Serious: Yes (Hospitalization)
  Sender: TEVA
  Company Number: US-TEVA-VS-3277373

PATIENT
  Age: 2 Year
  Sex: Male

DRUGS (5)
  1. CISPLATIN [Suspect]
     Active Substance: CISPLATIN
     Indication: Congenital retinoblastoma
     Route: 065
     Dates: start: 202209
  2. CYCLOPHOSPHAMIDE [Suspect]
     Active Substance: CYCLOPHOSPHAMIDE
     Indication: Retinoblastoma
     Route: 065
     Dates: start: 202209
  3. VINCRISTINE [Suspect]
     Active Substance: VINCRISTINE
     Indication: Retinoblastoma
     Route: 065
     Dates: start: 202209
  4. MELPHALAN [Suspect]
     Active Substance: MELPHALAN
     Indication: Retinoblastoma
     Route: 065
     Dates: start: 202212
  5. TOPOTECAN [Suspect]
     Active Substance: TOPOTECAN HYDROCHLORIDE
     Indication: Retinoblastoma
     Route: 050
     Dates: start: 202211

REACTIONS (3)
  - Cytomegalovirus chorioretinitis [Recovered/Resolved]
  - Vitreous haemorrhage [Unknown]
  - Rhegmatogenous retinal detachment [Unknown]
